FAERS Safety Report 11092695 (Version 1)
Quarter: 2015Q2

REPORT INFORMATION
  Report Type: Spontaneous
  Country: TR (occurrence: None)
  Receive Date: 20150504
  Receipt Date: 20150504
  Transmission Date: 20150821
  Serious: Yes (Hospitalization)
  Sender: FDA-Public Use
  Company Number: NSR_02059_2015

PATIENT
  Age: 58 Year
  Sex: Male

DRUGS (9)
  1. TRAMADOL (TRAMADOL) [Suspect]
     Active Substance: TRAMADOL
     Indication: PAIN
     Dosage: NOT THE PRESCRIBED AMOUNT, 200 MG, DAILY
  2. CITALOPRAM [Concomitant]
     Active Substance: CITALOPRAM HYDROBROMIDE
  3. ACETYLSALICYLIC ACID [Concomitant]
     Active Substance: ASPIRIN
  4. SELECTIVE SEROTONIN REUPTAKE INHIBITORS [Concomitant]
     Active Substance: UNSPECIFIED INGREDIENT
  5. AMLODIPIN [Concomitant]
     Active Substance: AMLODIPINE BESYLATE
  6. ISOSORBIDE MONONITRATE. [Concomitant]
     Active Substance: ISOSORBIDE MONONITRATE
  7. DEXKETOPROFEN [Concomitant]
     Active Substance: DEXKETOPROFEN
  8. ALPRAZOLAM (ALPRAZOLAM) [Suspect]
     Active Substance: ALPRAZOLAM
     Indication: INSOMNIA
     Dosage: NOT THE PRESCRIBED AMOUNT, 1 MG, DAILY
  9. RAMIPRIL. [Concomitant]
     Active Substance: RAMIPRIL

REACTIONS (15)
  - Respiration abnormal [None]
  - Dialysis [None]
  - Incorrect drug administration duration [None]
  - Hallucination, visual [None]
  - Rales [None]
  - Brain oedema [None]
  - Altered state of consciousness [None]
  - Mental status changes [None]
  - Hypopnoea [None]
  - Accidental overdose [None]
  - Drug interaction [None]
  - Blood creatinine increased [None]
  - Dysuria [None]
  - Heart rate increased [None]
  - Metabolic disorder [None]
